FAERS Safety Report 14833223 (Version 1)
Quarter: 2018Q2

REPORT INFORMATION
  Report Type: Report from Study
  Country: None (occurrence: US)
  Receive Date: 20180501
  Receipt Date: 20180501
  Transmission Date: 20180711
  Serious: Yes (Other)
  Sender: FDA-Public Use
  Company Number: US-ABBVIE-18P-163-2330939-00

PATIENT
  Sex: Female
  Weight: 45.4 kg

DRUGS (2)
  1. MARINOL [Suspect]
     Active Substance: DRONABINOL
     Indication: APPETITE DISORDER
     Route: 048
     Dates: start: 201704
  2. MACROBID [Concomitant]
     Active Substance: NITROFURANTOIN\NITROFURANTOIN MONOHYDRATE
     Indication: ANTIBIOTIC PROPHYLAXIS

REACTIONS (5)
  - Hyperthyroidism [Not Recovered/Not Resolved]
  - Gastroenteritis viral [Recovered/Resolved]
  - Dehydration [Recovered/Resolved]
  - Weight gain poor [Recovering/Resolving]
  - Impaired gastric emptying [Not Recovered/Not Resolved]

NARRATIVE: CASE EVENT DATE: 2017
